FAERS Safety Report 9525223 (Version 3)
Quarter: 2014Q2

REPORT INFORMATION
  Report Type: Report from Study
  Country: JP (occurrence: JP)
  Receive Date: 20130916
  Receipt Date: 20140604
  Transmission Date: 20141212
  Serious: Yes (Life-Threatening)
  Sender: FDA-Public Use
  Company Number: JP-NOVOPROD-387268

PATIENT
  Age: 70 Year
  Sex: Female

DRUGS (7)
  1. NORDITROPIN FLEXPRO [Suspect]
     Indication: GROWTH HORMONE DEFICIENCY
     Dosage: 0.20 MG, QD
     Route: 058
     Dates: start: 20110816, end: 20111030
  2. CORTRIL                            /00028601/ [Concomitant]
     Indication: HYPOPITUITARISM
     Dosage: 10 MG, QD
     Route: 048
  3. THYRADIN [Concomitant]
     Indication: HYPOPITUITARISM
     Dosage: 75 ?G, QD
     Route: 048
  4. DESMOPRESSIN [Concomitant]
     Indication: HYPOPITUITARISM
     Dosage: 0.02 ML, QD
     Route: 045
  5. UNIPHYLLA [Concomitant]
     Indication: ASTHMA
     Dosage: 200 MG, QD
     Route: 048
  6. RENIVACE [Concomitant]
     Indication: HYPERTENSION
     Dosage: 5 MG, QD
     Route: 048
  7. LIPOVAS                            /00499301/ [Concomitant]
     Indication: HYPERLIPIDAEMIA
     Dosage: 5 MG, QD
     Route: 048

REACTIONS (1)
  - Gastrointestinal submucosal tumour [Recovered/Resolved]
